FAERS Safety Report 16519975 (Version 1)
Quarter: 2019Q3

REPORT INFORMATION
  Report Type: Spontaneous
  Country: US (occurrence: US)
  Receive Date: 20190702
  Receipt Date: 20190702
  Transmission Date: 20191004
  Serious: Yes (Hospitalization)
  Sender: FDA-Public Use
  Company Number: US-VERTEX PHARMACEUTICALS-2019-006035

PATIENT
  Age: 56 Year
  Sex: Male

DRUGS (24)
  1. KALYDECO [Suspect]
     Active Substance: IVACAFTOR
     Indication: CYSTIC FIBROSIS
     Dosage: 1 DOSAGE FORM, BID
     Route: 048
     Dates: start: 20190322
  2. AZITHROMYCIN ANHYDROUS. [Concomitant]
     Active Substance: AZITHROMYCIN ANHYDROUS
  3. VITAMIN B12 [Concomitant]
     Active Substance: CYANOCOBALAMIN
  4. CRESTOR [Concomitant]
     Active Substance: ROSUVASTATIN CALCIUM
  5. DOCUSATE SODIUM. [Concomitant]
     Active Substance: DOCUSATE SODIUM
  6. LANTUS [Concomitant]
     Active Substance: INSULIN GLARGINE
  7. NOVOLOG [Concomitant]
     Active Substance: INSULIN ASPART
  8. PROAIR HFA [Concomitant]
     Active Substance: ALBUTEROL SULFATE
  9. BIOTIN [Concomitant]
     Active Substance: BIOTIN
  10. CAYSTON [Concomitant]
     Active Substance: AZTREONAM
     Route: 055
  11. CALCIUM [Concomitant]
     Active Substance: CALCIUM
  12. CARVEDILOL. [Concomitant]
     Active Substance: CARVEDILOL
  13. MYCOPHENOLATE [Concomitant]
     Active Substance: MYCOPHENOLIC ACID
  14. PREDNISONE. [Concomitant]
     Active Substance: PREDNISONE
  15. CLONIDINE. [Concomitant]
     Active Substance: CLONIDINE
  16. OMEPRAZOLE. [Concomitant]
     Active Substance: OMEPRAZOLE
  17. COLISTIMETHATE [COLISTIMETHATE SODIUM] [Concomitant]
  18. MAGNESIUM OXIDE. [Concomitant]
     Active Substance: MAGNESIUM OXIDE
  19. LOVAZA [Concomitant]
     Active Substance: OMEGA-3-ACID ETHYL ESTERS
  20. MELATONIN [Concomitant]
     Active Substance: MELATONIN
  21. NOXAFIL [Concomitant]
     Active Substance: POSACONAZOLE
  22. BACTRIM [Concomitant]
     Active Substance: SULFAMETHOXAZOLE\TRIMETHOPRIM
  23. STERILE WATER [Concomitant]
     Active Substance: WATER
  24. VALCYTE [Concomitant]
     Active Substance: VALGANCICLOVIR HYDROCHLORIDE

REACTIONS (1)
  - Tumour excision [Unknown]

NARRATIVE: CASE EVENT DATE: 20190604
